FAERS Safety Report 12437256 (Version 1)
Quarter: 2016Q2

REPORT INFORMATION
  Report Type: Spontaneous
  Country: US (occurrence: None)
  Receive Date: 20160603
  Receipt Date: 20160603
  Transmission Date: 20160815
  Serious: Yes (Other)
  Sender: FDA-Public Use
  Company Number: None

PATIENT
  Age: 69 Year
  Sex: Male
  Weight: 117.94 kg

DRUGS (3)
  1. LOSARTAN. [Concomitant]
     Active Substance: LOSARTAN
  2. TOLTERODINE TART ER 4 MG CAP 4 MG MYLAN LABS [Suspect]
     Active Substance: TOLTERODINE TARTRATE
     Indication: BLADDER DISORDER
     Dosage: 90 CAPSULES AT BEDTIME BY MOUTH
     Route: 048
     Dates: start: 20160119, end: 20160327
  3. 1 A DAY VITAMIN [Concomitant]
     Active Substance: VITAMINS

REACTIONS (5)
  - Abnormal faeces [None]
  - Weight increased [None]
  - Abdominal pain upper [None]
  - Back pain [None]
  - Constipation [None]

NARRATIVE: CASE EVENT DATE: 20160502
